FAERS Safety Report 7054111-5 (Version None)
Quarter: 2010Q4

REPORT INFORMATION
  Report Type: 
  Country: None (occurrence: None)
  Receive Date: 20101020
  Receipt Date: 20101006
  Transmission Date: 20110411
  Serious: Yes (Hospitalization)
  Sender: FDA-Public Use
  Company Number: PHHY2010JP60028

PATIENT
  Age: 69 Year
  Sex: Male

DRUGS (1)
  1. DIOVAN [Suspect]
     Indication: HYPERTENSION
     Dosage: UNK
     Route: 048

REACTIONS (4)
  - BILE DUCT STONE [None]
  - HYPOAESTHESIA ORAL [None]
  - MYALGIA [None]
  - SWOLLEN TONGUE [None]
